FAERS Safety Report 7784440-9 (Version None)
Quarter: 2011Q3

REPORT INFORMATION
  Report Type: 
  Country: None (occurrence: None)
  Receive Date: 20110928
  Receipt Date: 20110919
  Transmission Date: 20111222
  Serious: Yes (Other)
  Sender: FDA-Public Use
  Company Number: US-BAYER-2010-007165

PATIENT
  Age: 33 Year
  Sex: Female
  Weight: 77 kg

DRUGS (7)
  1. YAZ [Suspect]
     Indication: PREMENSTRUAL SYNDROME
     Dosage: UNK
     Dates: start: 20070926
  2. IBUPROFEN [Concomitant]
     Indication: MYALGIA
     Dosage: 200 MG, BID
     Dates: start: 20060101
  3. NEXIUM [Concomitant]
  4. DARVOCET [Concomitant]
  5. YASMIN [Suspect]
     Indication: PREMENSTRUAL SYNDROME
     Dosage: UNK
     Dates: start: 20070926
  6. ACETAMINOPHEN [Concomitant]
     Indication: HEADACHE
     Dosage: UNK UNK, PRN
  7. DICLOFENAC [Concomitant]

REACTIONS (8)
  - ABDOMINAL PAIN UPPER [None]
  - GALLBLADDER DISORDER [None]
  - ANXIETY [None]
  - NAUSEA [None]
  - INJURY [None]
  - ANHEDONIA [None]
  - CHOLECYSTITIS CHRONIC [None]
  - PAIN [None]
